FAERS Safety Report 14921388 (Version 1)
Quarter: 2018Q2

REPORT INFORMATION
  Report Type: Spontaneous
  Country: FR (occurrence: FR)
  Receive Date: 20180522
  Receipt Date: 20180522
  Transmission Date: 20180711
  Serious: Yes (Hospitalization)
  Sender: FDA-Public Use
  Company Number: FR-TEVA-2018-FR-895382

PATIENT
  Age: 50 Year
  Sex: Male

DRUGS (5)
  1. DAFALGAN CODEINE [Suspect]
     Active Substance: ACETAMINOPHEN\CODEINE PHOSPHATE
     Indication: PAIN
     Route: 048
     Dates: start: 20170918, end: 20170926
  2. VOLTARENE (DICLOFENAC SODIUM) [Suspect]
     Active Substance: DICLOFENAC SODIUM
     Indication: PAIN
     Route: 003
  3. ANTALNOX 550 MG, COMPRIM? PELLICUL? S?CABLE [Suspect]
     Active Substance: NAPROXEN SODIUM
     Indication: PAIN
     Dosage: TABLET COATED SCORED
     Route: 048
     Dates: start: 20170918, end: 20170926
  4. OMEPRAZOLE DELAYED RELEASE CAPSULES,10 MG, 20 MG AND 30 MG [Suspect]
     Active Substance: OMEPRAZOLE
     Indication: PROPHYLAXIS AGAINST GASTROINTESTINAL ULCER
     Route: 048
     Dates: start: 20170918, end: 20170926
  5. LANSOPRAZOLE. [Suspect]
     Active Substance: LANSOPRAZOLE
     Indication: GASTROINTESTINAL ULCER
     Route: 048
     Dates: start: 20171018, end: 20171025

REACTIONS (2)
  - Drug reaction with eosinophilia and systemic symptoms [Recovering/Resolving]
  - Linear IgA disease [Recovering/Resolving]

NARRATIVE: CASE EVENT DATE: 20171002
